FAERS Safety Report 5488284-2 (Version None)
Quarter: 2007Q4

REPORT INFORMATION
  Report Type: 
  Country: None (occurrence: None)
  Receive Date: 20071017
  Receipt Date: 20071009
  Transmission Date: 20080405
  Serious: Yes (Hospitalization, Other)
  Sender: FDA-Public Use
  Company Number: US-ROCHE-516853

PATIENT
  Age: 51 Year
  Sex: Male

DRUGS (2)
  1. PEG-INTERFERON A-2A (RO 25-8310) [Suspect]
     Route: 065
     Dates: start: 20070713
  2. RIBAVIRIN [Suspect]
     Route: 065
     Dates: start: 20070713

REACTIONS (6)
  - ASTHENIA [None]
  - DIZZINESS [None]
  - DYSPNOEA [None]
  - HYPERSOMNIA [None]
  - LOSS OF CONSCIOUSNESS [None]
  - WHITE BLOOD CELL COUNT DECREASED [None]
